FAERS Safety Report 8516313-8 (Version None)
Quarter: 2012Q3

REPORT INFORMATION
  Report Type: 
  Country: None (occurrence: None)
  Receive Date: 20120717
  Receipt Date: 20120712
  Transmission Date: 20120928
  Serious: Yes (Death, Hospitalization)
  Sender: FDA-Public Use
  Company Number: US-AMGEN-USASP2012038248

PATIENT
  Age: 80 Year
  Sex: Male
  Weight: 120.64 kg

DRUGS (2)
  1. ENBREL [Suspect]
     Indication: PSORIASIS
     Dosage: 50 MG, QWK
     Route: 058
     Dates: start: 20091118, end: 20120601
  2. WARFARIN SODIUM [Concomitant]
     Dosage: UNK

REACTIONS (2)
  - PENIS CARCINOMA [None]
  - CEREBRAL HAEMORRHAGE [None]
